FAERS Safety Report 6649432-1 (Version None)
Quarter: 2010Q1

REPORT INFORMATION
  Report Type: 
  Country: None (occurrence: None)
  Receive Date: 20100322
  Receipt Date: 20100309
  Transmission Date: 20100710
  Serious: Yes (Hospitalization)
  Sender: FDA-Public Use
  Company Number: 008511

PATIENT
  Sex: Female
  Weight: 49.8 kg

DRUGS (14)
  1. CIMZIA [Suspect]
     Indication: RHEUMATOID ARTHRITIS
     Dosage: (400 MG SUBCUTANEOUS)
     Route: 058
     Dates: start: 20091001, end: 20100101
  2. AMBIEN [Suspect]
     Indication: INSOMNIA
     Dosage: (10 MG HS ORAL)
     Route: 048
     Dates: start: 20060101, end: 20091201
  3. ENBREL [Concomitant]
  4. XANAX [Concomitant]
  5. WELLBUTRIN [Concomitant]
  6. CELEXA [Concomitant]
  7. DAILY MULTIVITAMIN [Concomitant]
  8. KLONOPIN [Concomitant]
  9. LORTAB [Concomitant]
  10. ATARAX [Concomitant]
  11. PLAVIX [Concomitant]
  12. ASPIRIN [Concomitant]
  13. TENORMIN [Concomitant]
  14. MEVACOR [Concomitant]

REACTIONS (8)
  - AMNESIA [None]
  - ARTERIAL OCCLUSIVE DISEASE [None]
  - DIZZINESS [None]
  - FALL [None]
  - GASTRIC POLYPS [None]
  - HALLUCINATION [None]
  - NAUSEA [None]
  - UPPER LIMB FRACTURE [None]
